FAERS Safety Report 10857768 (Version 5)
Quarter: 2015Q1

REPORT INFORMATION
  Report Type: Spontaneous
  Country: IT (occurrence: IT)
  Receive Date: 20150223
  Receipt Date: 20150317
  Transmission Date: 20150721
  Serious: Yes (Other)
  Sender: FDA-Public Use
  Company Number: IT-PFIZER INC-2015062907

PATIENT
  Age: 47 Year
  Sex: Female

DRUGS (6)
  1. BASSADO [Suspect]
     Active Substance: DOXYCYCLINE HYCLATE
     Indication: BRUCELLOSIS
     Dosage: 1 DF, 2X/DAY, IN THE MORNING AND IN THE EVENING
     Route: 048
     Dates: start: 20150111, end: 20150112
  2. FEVARIN [Concomitant]
     Active Substance: FLUVOXAMINE MALEATE
     Dosage: 50 MG, 1X/DAY IN THE MORNING
     Route: 048
  3. RIFADIN [Suspect]
     Active Substance: RIFAMPIN
     Dosage: 600 MG, 1X/DAY, IN THE MORNING
     Route: 048
     Dates: start: 20150112, end: 20150112
  4. RIFADIN [Suspect]
     Active Substance: RIFAMPIN
     Indication: BRUCELLOSIS
     Dosage: 600 MG, 1X/DAY, AT LUNCH
     Route: 048
     Dates: start: 20150111, end: 20150111
  5. XANAX [Concomitant]
     Active Substance: ALPRAZOLAM
     Dosage: 0.5 MG, 1X/DAY, IN THE EVENING
  6. RIFADIN [Suspect]
     Active Substance: RIFAMPIN
     Dosage: 600 MG, 1X/DAY, IN THE EVENING
     Route: 048
     Dates: start: 20150113, end: 20150114

REACTIONS (7)
  - Tremor [Recovered/Resolved]
  - Vomiting [Recovered/Resolved]
  - Confusional state [Unknown]
  - Malaise [Recovered/Resolved]
  - Vertigo [Recovered/Resolved]
  - Decreased appetite [Unknown]
  - Hallucination, visual [Recovered/Resolved]

NARRATIVE: CASE EVENT DATE: 20150111
